FAERS Safety Report 11167592 (Version 2)
Quarter: 2015Q3

REPORT INFORMATION
  Report Type: Spontaneous
  Country: US (occurrence: US)
  Receive Date: 20150605
  Receipt Date: 20150722
  Transmission Date: 20151125
  Serious: Yes (Other)
  Sender: FDA-Public Use
  Company Number: US-PFIZER INC-2015185360

PATIENT
  Age: 80 Year
  Sex: Female

DRUGS (3)
  1. DULOXETINE DR [Suspect]
     Active Substance: DULOXETINE
     Dosage: 60 MG, UNK
  2. LYRICA [Suspect]
     Active Substance: PREGABALIN
     Indication: FIBROMYALGIA
     Dosage: 50 UNK, UNK
     Dates: start: 201505
  3. LYRICA [Suspect]
     Active Substance: PREGABALIN
     Indication: SPINAL DEFORMITY

REACTIONS (2)
  - Renal disorder [Not Recovered/Not Resolved]
  - Dry mouth [Not Recovered/Not Resolved]
